FAERS Safety Report 17092676 (Version 1)
Quarter: 2019Q4

REPORT INFORMATION
  Report Type: Spontaneous
  Country: US (occurrence: US)
  Receive Date: 20191129
  Receipt Date: 20191129
  Transmission Date: 20200122
  Serious: No
  Sender: FDA-Public Use
  Company Number: US-ASTRAZENECA-2019SF66422

PATIENT
  Age: 65 Year
  Sex: Female
  Weight: 49 kg

DRUGS (2)
  1. SEROQUEL [Suspect]
     Active Substance: QUETIAPINE FUMARATE
     Indication: PRODUCT USE IN UNAPPROVED INDICATION
     Dosage: FOR 2 WEEKS
     Route: 048
     Dates: start: 201910
  2. SEROQUEL [Suspect]
     Active Substance: QUETIAPINE FUMARATE
     Indication: PRODUCT USE IN UNAPPROVED INDICATION
     Dosage: HAF
     Route: 048
     Dates: start: 20191107

REACTIONS (5)
  - Rapid eye movement sleep behaviour disorder [Not Recovered/Not Resolved]
  - Somnolence [Not Recovered/Not Resolved]
  - Nausea [Not Recovered/Not Resolved]
  - Fatigue [Not Recovered/Not Resolved]
  - Nightmare [Not Recovered/Not Resolved]

NARRATIVE: CASE EVENT DATE: 201910
